FAERS Safety Report 7892598-6 (Version None)
Quarter: 2011Q4

REPORT INFORMATION
  Report Type: 
  Country: None (occurrence: None)
  Receive Date: 20111027
  Receipt Date: 20111017
  Transmission Date: 20120403
  Serious: Yes (Other)
  Sender: FDA-Public Use
  Company Number: 2011029179

PATIENT
  Age: 50 Year
  Sex: Female
  Weight: 83.4619 kg

DRUGS (42)
  1. TREXIMET (SUMATRIPTAN) [Concomitant]
  2. VITAMIN B12 [Concomitant]
  3. PRAVASTATIN [Concomitant]
  4. VICODIN [Concomitant]
  5. IBUPROFEN [Concomitant]
  6. CHLORZOXAZONE [Concomitant]
  7. CELEBREX [Concomitant]
  8. FLONASE [Concomitant]
  9. OMEPRAZOLE (OMEPRAZOLE)  THEO 24 (THEOPHYLLINE) [Concomitant]
  10. DIOVAN [Concomitant]
  11. PREDNISONE TAB [Concomitant]
  12. SYMBICORT [Concomitant]
  13. HIZENTRA [Suspect]
     Dosage: SEE IMAGE
     Route: 058
     Dates: start: 20101103
  14. HIZENTRA [Suspect]
     Dosage: SEE IMAGE
     Route: 058
     Dates: start: 20110630
  15. HIZENTRA [Suspect]
     Dosage: SEE IMAGE
     Route: 058
     Dates: start: 20110719
  16. HIZENTRA [Suspect]
     Dosage: SEE IMAGE
     Route: 058
     Dates: start: 20101103
  17. CELEXA [Concomitant]
  18. XYZAL [Concomitant]
  19. PROAIR (PROCATEROL HYDROCHLORIDE) [Concomitant]
  20. ATARAX [Concomitant]
  21. OXYBUTYNIN [Concomitant]
  22. CALCIUM + D (OYSTER SHELL CALCIUM WITH VITAMIN D/01675501/) [Concomitant]
  23. BACTRIM DS [Concomitant]
  24. HIZENTRA [Suspect]
     Indication: IMMUNODEFICIENCY COMMON VARIABLE
  25. PROMETHAZINE [Concomitant]
  26. FISH OIL (FISH OIL) [Concomitant]
  27. CIPRO [Concomitant]
  28. FOSAMAX [Concomitant]
  29. TESSALON [Concomitant]
  30. B-100 COMPLEX (NICOTINAM. W/PYRIDOXI. HCL/RIBOFL./THIAM. HCL) [Concomitant]
  31. PREMPRO (PROVELLA-14) [Concomitant]
  32. ALBUTEROL [Concomitant]
  33. MAGNESIUM (MAGNESIUM) [Concomitant]
  34. RANITIDINE HYDROCHLORIDE [Concomitant]
  35. GABAPENTIN [Concomitant]
  36. HIZENTRA [Suspect]
  37. ASCORBIC ACID [Concomitant]
  38. SEROQUEL XR (QUETIAPINE) [Concomitant]
  39. SINGULAIR [Concomitant]
  40. PRENATAL (PRENATAL /00231801/) [Concomitant]
  41. KLONOPIN [Concomitant]
  42. HYDROCODONE BITARTRATE + ACETAMINOPHEN [Concomitant]

REACTIONS (4)
  - KIDNEY INFECTION [None]
  - SINUSITIS [None]
  - RENAL DISORDER [None]
  - BACK PAIN [None]
